FAERS Safety Report 20698893 (Version 2)
Quarter: 2022Q3

REPORT INFORMATION
  Report Type: Spontaneous
  Country: US (occurrence: US)
  Receive Date: 20220412
  Receipt Date: 20220926
  Transmission Date: 20221027
  Serious: Yes (Other)
  Sender: FDA-Public Use
  Company Number: US-BRISTOL-MYERS SQUIBB COMPANY-2022-017176

PATIENT
  Age: 77 Year
  Sex: Male

DRUGS (2)
  1. REVLIMID [Suspect]
     Active Substance: LENALIDOMIDE
     Indication: Monoclonal antibody immunoconjugate therapy
     Route: 065
     Dates: start: 20220304
  2. REVLIMID [Suspect]
     Active Substance: LENALIDOMIDE
     Route: 048
     Dates: start: 20210407

REACTIONS (4)
  - Adverse event [Unknown]
  - Accident [Unknown]
  - Intentional product use issue [Unknown]
  - Limb injury [Unknown]

NARRATIVE: CASE EVENT DATE: 20220304
